FAERS Safety Report 19037272 (Version 1)
Quarter: 2021Q1

REPORT INFORMATION
  Report Type: Spontaneous
  Country: US (occurrence: US)
  Receive Date: 20210322
  Receipt Date: 20210322
  Transmission Date: 20210420
  Serious: Yes (Other)
  Sender: FDA-Public Use
  Company Number: None

PATIENT
  Age: 50 Year
  Sex: Male

DRUGS (8)
  1. MIRTAZAPINE 45MG PO QHS [Concomitant]
     Dates: start: 20100131
  2. ALPRAZOLAM 1MG PO QHS [Concomitant]
     Dates: start: 20100131
  3. TRINTELLIX 10MG PO QD [Concomitant]
     Dates: start: 20190610
  4. ASENAPINE. [Suspect]
     Active Substance: ASENAPINE
     Indication: MAJOR DEPRESSION
     Route: 060
     Dates: start: 20210223, end: 20210310
  5. VYVANSE 50MG PO QAM [Concomitant]
     Dates: start: 20191104
  6. ALPRAZOLAM XR 3MG PO QAM [Concomitant]
     Dates: start: 20100131
  7. BUPROPION XL 300MG PO QAM [Concomitant]
     Dates: start: 20100131
  8. LAMOTRIGINE 300MG PO QAM AND 150MG QHS [Concomitant]
     Dates: start: 20100131

REACTIONS (7)
  - Product solubility abnormal [None]
  - Tongue disorder [None]
  - Suicidal ideation [None]
  - Product substitution issue [None]
  - Depression [None]
  - Self-injurious ideation [None]
  - Product taste abnormal [None]

NARRATIVE: CASE EVENT DATE: 20210223
